FAERS Safety Report 4842691-7 (Version None)
Quarter: 2005Q4

REPORT INFORMATION
  Report Type: 
  Country: None (occurrence: None)
  Receive Date: 20051129
  Receipt Date: 20051116
  Transmission Date: 20060501
  Serious: Yes (Other)
  Sender: FDA-Public Use
  Company Number: 2005157348

PATIENT

DRUGS (1)
  1. GEODON [Suspect]
     Dosage: INTRAMUSCULAR
     Route: 030

REACTIONS (2)
  - NEUROLEPTIC MALIGNANT SYNDROME [None]
  - RESUSCITATION [None]
